FAERS Safety Report 5695922-8 (Version None)
Quarter: 2008Q2

REPORT INFORMATION
  Report Type: 
  Country: None (occurrence: None)
  Receive Date: 20080407
  Receipt Date: 20080404
  Transmission Date: 20081010
  Serious: Yes (Other)
  Sender: FDA-Public Use
  Company Number: A0719131A

PATIENT

DRUGS (1)
  1. ALLI [Suspect]
     Indication: DRUG USE FOR UNKNOWN INDICATION
     Dates: start: 20080301

REACTIONS (6)
  - DEPENDENCE [None]
  - FOOD CRAVING [None]
  - JOINT SWELLING [None]
  - LOSS OF CONSCIOUSNESS [None]
  - SWELLING [None]
  - WEIGHT INCREASED [None]
